FAERS Safety Report 4901981-X (Version None)
Quarter: 2006Q1

REPORT INFORMATION
  Report Type: 
  Country: None (occurrence: None)
  Receive Date: 20060203
  Receipt Date: 20060203
  Transmission Date: 20060701
  Serious: Yes (Life-Threatening)
  Sender: FDA-Public Use
  Company Number: None

PATIENT
  Sex: Female

DRUGS (1)
  1. ALDARA [Suspect]
     Indication: ACTINIC KERATOSIS
     Dosage: TOPICAL CREAM, QDAY
     Route: 061
     Dates: start: 20050901, end: 20051101

REACTIONS (1)
  - WHITE BLOOD CELL COUNT DECREASED [None]
